FAERS Safety Report 6707984-7 (Version None)
Quarter: 2010Q2

REPORT INFORMATION
  Report Type: 
  Country: None (occurrence: None)
  Receive Date: 20100503
  Receipt Date: 20090609
  Transmission Date: 20101027
  Serious: Yes (Other)
  Sender: FDA-Public Use
  Company Number: CA-BAYER-200821273NA

PATIENT
  Age: 60 Year
  Sex: Female
  Weight: 74 kg

DRUGS (6)
  1. BETASERON [Suspect]
     Indication: RELAPSING-REMITTING MULTIPLE SCLEROSIS
     Route: 058
     Dates: start: 20031016
  2. BACLOFEN [Concomitant]
     Indication: MUSCLE SPASMS
     Route: 048
  3. NEURONTIN [Concomitant]
     Indication: NEURALGIA
     Route: 048
  4. TRYLEPTIL [Concomitant]
     Indication: MUSCLE SPASMS
     Route: 048
     Dates: end: 20080618
  5. FOSINOPRIL SODIUM [Concomitant]
     Indication: HYPERTENSION
     Route: 048
  6. CRESTOR [Concomitant]
     Indication: BLOOD CHOLESTEROL ABNORMAL
     Route: 048

REACTIONS (8)
  - AMNESIA [None]
  - BALANCE DISORDER [None]
  - BURNING SENSATION [None]
  - FALL [None]
  - GAIT DISTURBANCE [None]
  - HEADACHE [None]
  - HYPOAESTHESIA [None]
  - SENSORY DISTURBANCE [None]
